FAERS Safety Report 22304546 (Version 1)
Quarter: 2023Q2

REPORT INFORMATION
  Report Type: Spontaneous
  Country: US (occurrence: US)
  Receive Date: 20230510
  Receipt Date: 20230510
  Transmission Date: 20230722
  Serious: Yes (Death, Other)
  Sender: FDA-Public Use
  Company Number: US-009507513-2305USA002425

PATIENT
  Age: 84 Year
  Sex: Male

DRUGS (1)
  1. KEYTRUDA [Suspect]
     Active Substance: PEMBROLIZUMAB
     Dosage: 200 MILLIGRAM EVERY 21 DAYS

REACTIONS (1)
  - Death [Fatal]

NARRATIVE: CASE EVENT DATE: 20220504
